FAERS Safety Report 21817509 (Version 2)
Quarter: 2023Q1

REPORT INFORMATION
  Report Type: Report from Study
  Country: LT (occurrence: LT)
  Receive Date: 20230104
  Receipt Date: 20230109
  Transmission Date: 20230417
  Serious: Yes (Other)
  Sender: FDA-Public Use
  Company Number: LT-BRISTOL-MYERS SQUIBB COMPANY-2022-157733

PATIENT
  Age: 70 Year
  Sex: Male
  Weight: 79.9 kg

DRUGS (3)
  1. APIXABAN [Concomitant]
     Active Substance: APIXABAN
     Indication: Thrombosis prophylaxis
     Dates: start: 20220310
  2. MIRABEGRON [Concomitant]
     Active Substance: MIRABEGRON
     Indication: Benign prostatic hyperplasia
     Dates: start: 20220930
  3. EZOMEPRAZOL [Concomitant]
     Indication: Gastritis erosive
     Dates: start: 20221122

REACTIONS (1)
  - Acute myeloid leukaemia [Not Recovered/Not Resolved]

NARRATIVE: CASE EVENT DATE: 20221130
